FAERS Safety Report 6920294-8 (Version None)
Quarter: 2010Q3

REPORT INFORMATION
  Report Type: 
  Country: None (occurrence: None)
  Receive Date: 20100811
  Receipt Date: 20100802
  Transmission Date: 20110219
  Serious: Yes (Hospitalization, Other)
  Sender: FDA-Public Use
  Company Number: GB-AMGEN-QUU421817

PATIENT
  Sex: Female
  Weight: 94 kg

DRUGS (3)
  1. ENBREL [Suspect]
     Indication: PSORIASIS
     Route: 058
     Dates: start: 20090601, end: 20100610
  2. ACETAMINOPHEN AND CODEINE PHOSPHATE [Concomitant]
     Dosage: UNKNOWN
  3. METOCLOPRAMIDE [Concomitant]
     Dosage: UNKNOWN
     Dates: start: 20081223

REACTIONS (6)
  - BALANCE DISORDER [None]
  - CONFUSIONAL STATE [None]
  - GAIT DISTURBANCE [None]
  - LOSS OF CONSCIOUSNESS [None]
  - MENINGITIS ASEPTIC [None]
  - MUSCULAR WEAKNESS [None]
